FAERS Safety Report 9848875 (Version 1)
Quarter: 2013Q4

REPORT INFORMATION
  Report Type: Spontaneous
  Country: US (occurrence: None)
  Receive Date: 20131226
  Receipt Date: 20131226
  Transmission Date: 20140711
  Serious: Yes (Hospitalization)
  Sender: FDA-Public Use
  Company Number: PHEH2013US004299

PATIENT
  Sex: Male

DRUGS (3)
  1. OXCARBAZEPINE (OXCARBAZEPINE) UNKNOWN [Suspect]
     Indication: EPILEPSY
  2. KEPPRA (LEVETIRACETAM) [Concomitant]
  3. TRILEPTAL (OXCARBAZEPINE) [Concomitant]

REACTIONS (1)
  - Drug ineffective [None]
